FAERS Safety Report 7266374-1 (Version None)
Quarter: 2011Q1

REPORT INFORMATION
  Report Type: 
  Country: None (occurrence: None)
  Receive Date: 20110120
  Receipt Date: 20110106
  Transmission Date: 20110831
  Serious: Yes (Hospitalization)
  Sender: FDA-Public Use
  Company Number: 1000018139

PATIENT
  Age: 84 Year
  Sex: Female

DRUGS (11)
  1. MEMANTINE [Suspect]
     Dosage: 10 MG (10 MG, 1 IN 1 D), ORAL
     Route: 048
     Dates: start: 20101019, end: 20101027
  2. KARDEGIC (ACETYLSALICYLATE LYSINE) [Concomitant]
  3. POTASSIUM CHLORIDE [Concomitant]
  4. NEO-MERCAZOLE TAB [Suspect]
     Dosage: 10 (10 MG, 1 IN 1 D), ORAL
     Route: 048
     Dates: start: 20100921, end: 20101011
  5. ACETAMINOPHEN [Concomitant]
  6. PYOSTACINE (PRISTINAMYCIN) [Suspect]
     Dosage: ORAL
     Route: 048
     Dates: start: 20101019, end: 20101021
  7. LOVENOX [Concomitant]
  8. LASIX [Concomitant]
  9. MEMANTINE [Suspect]
     Dosage: 10 MG (10 MG, 1 IN 1 D), ORAL
     Route: 048
     Dates: start: 20100921, end: 20101011
  10. NEO-MERCAZOLE TAB [Suspect]
     Dosage: 10 MG (10 MG, 1 IN 1 D), ORAL
     Route: 048
     Dates: start: 20101019, end: 20101027
  11. ATACAND [Concomitant]

REACTIONS (7)
  - OEDEMA MOUTH [None]
  - DRUG INEFFECTIVE [None]
  - OEDEMA PERIPHERAL [None]
  - WOUND [None]
  - TOXIC SKIN ERUPTION [None]
  - INFLAMMATION [None]
  - CARDIAC FAILURE [None]
